FAERS Safety Report 10417132 (Version 2)
Quarter: 2014Q4

REPORT INFORMATION
  Report Type: Report from Study
  Country: DK (occurrence: DK)
  Receive Date: 20140828
  Receipt Date: 20141010
  Transmission Date: 20150528
  Serious: Yes (Other)
  Sender: FDA-Public Use
  Company Number: DK-ABBVIE-14P-044-1273313-00

PATIENT
  Age: 64 Year
  Sex: Male
  Weight: 75 kg

DRUGS (3)
  1. IBUPROFEN. [Concomitant]
     Active Substance: IBUPROFEN
     Indication: HIDRADENITIS
     Route: 048
     Dates: start: 20120928
  2. HIBISCRUB [Concomitant]
     Indication: HIDRADENITIS
     Route: 061
     Dates: start: 20120917
  3. HUMIRA [Suspect]
     Active Substance: ADALIMUMAB
     Indication: HIDRADENITIS
     Route: 058
     Dates: start: 20130107, end: 20140804

REACTIONS (1)
  - Papillary cystadenoma lymphomatosum [Not Recovered/Not Resolved]

NARRATIVE: CASE EVENT DATE: 20140803
